FAERS Safety Report 9650737 (Version 1)
Quarter: 2013Q4

REPORT INFORMATION
  Report Type: Spontaneous
  Country: GB (occurrence: GB)
  Receive Date: 20131029
  Receipt Date: 20131029
  Transmission Date: 20140711
  Serious: Yes (Death)
  Sender: FDA-Public Use
  Company Number: GB-JNJFOC-20131013654

PATIENT
  Sex: 0

DRUGS (4)
  1. NICOTINE [Suspect]
     Route: 065
  2. NICOTINE [Suspect]
     Indication: SMOKING CESSATION THERAPY
     Route: 065
  3. VARENICLINE [Suspect]
     Indication: SMOKING CESSATION THERAPY
     Route: 065
  4. BUPROPION [Suspect]
     Indication: SMOKING CESSATION THERAPY
     Route: 065

REACTIONS (1)
  - Completed suicide [Fatal]
